FAERS Safety Report 9637670 (Version 2)
Quarter: 2013Q4

REPORT INFORMATION
  Report Type: Spontaneous
  Country: US (occurrence: US)
  Receive Date: 20131022
  Receipt Date: 20131030
  Transmission Date: 20140711
  Serious: Yes (Other)
  Sender: FDA-Public Use
  Company Number: US-PFIZER INC-2013297962

PATIENT
  Age: 60 Year
  Sex: Female
  Weight: 86.17 kg

DRUGS (2)
  1. LYRICA [Suspect]
     Indication: FIBROMYALGIA
     Dosage: 50 MG, 4X/DAY
     Route: 048
     Dates: start: 2006
  2. LYRICA [Suspect]
     Indication: PAIN
     Dosage: UNK
     Route: 048

REACTIONS (3)
  - Off label use [Unknown]
  - Adrenal insufficiency [Unknown]
  - Drug ineffective [Unknown]
